FAERS Safety Report 6242110-2 (Version None)
Quarter: 2009Q2

REPORT INFORMATION
  Report Type: 
  Country: None (occurrence: None)
  Receive Date: 20090624
  Receipt Date: 20080529
  Transmission Date: 20091009
  Serious: Yes (Hospitalization, Other)
  Sender: FDA-Public Use
  Company Number: US-ASTRAZENECA-2008UW00795

PATIENT
  Age: 16432 Day
  Sex: Female
  Weight: 70.8 kg

DRUGS (11)
  1. SEROQUEL [Suspect]
     Indication: BIPOLAR DISORDER
     Dosage: 100MG, 200MG AND 300 MG
     Route: 048
     Dates: start: 20030121, end: 20060222
  2. SEROQUEL [Suspect]
     Dosage: 25 MG - 300 MG
     Route: 048
     Dates: start: 20030121
  3. GEODON [Concomitant]
  4. HALDOL [Concomitant]
  5. RISPERDAL [Concomitant]
  6. STELAZINE [Concomitant]
  7. ZYPREXA [Concomitant]
  8. DEPAKOTE [Concomitant]
     Dates: start: 20070401
  9. CLONAZEPAM [Concomitant]
  10. HYDROCHLOROTHIAZIDE [Concomitant]
  11. ASPIRIN [Concomitant]

REACTIONS (4)
  - CARDIAC OPERATION [None]
  - DIABETES MELLITUS [None]
  - TACHYCARDIA [None]
  - TYPE 2 DIABETES MELLITUS [None]
